FAERS Safety Report 5526870-1 (Version None)
Quarter: 2007Q4

REPORT INFORMATION
  Report Type: 
  Country: None (occurrence: None)
  Receive Date: 20071127
  Receipt Date: 20071121
  Transmission Date: 20080405
  Serious: Yes (Other)
  Sender: FDA-Public Use
  Company Number: PHBS2007BR19613

PATIENT
  Age: 74 Year
  Sex: Female
  Weight: 49 kg

DRUGS (4)
  1. FORADIL [Suspect]
     Indication: ASTHMA
     Dosage: UNK, BID
  2. ADALAT [Concomitant]
     Dosage: UNK, BID
     Route: 048
  3. DIURETICS [Concomitant]
     Dosage: UNK, QD
     Route: 048
  4. SOMALGIN [Concomitant]
     Dosage: UNK, QD
     Route: 048

REACTIONS (2)
  - ASTHMA [None]
  - CEREBROVASCULAR ACCIDENT [None]
